FAERS Safety Report 19449374 (Version 2)
Quarter: 2021Q2

REPORT INFORMATION
  Report Type: Spontaneous
  Country: BG (occurrence: BG)
  Receive Date: 20210622
  Receipt Date: 20210630
  Transmission Date: 20210717
  Serious: Yes (Other)
  Sender: FDA-Public Use
  Company Number: BG-B.I. PHARMACEUTICALS,INC./RIDGEFIELD-2021-BI-109080

PATIENT
  Age: 65 Year
  Sex: Female

DRUGS (3)
  1. VARGATEF [Suspect]
     Active Substance: NINTEDANIB
     Indication: TARGETED CANCER THERAPY
     Dosage: CHEMOTHERAPY + TARGET THERAPY (THIRD LINE):?                            DOCETAXEL 75 MG/M2 I.V. ON D
     Route: 048
     Dates: start: 20200512, end: 20201006
  2. VARGATEF [Suspect]
     Active Substance: NINTEDANIB
     Dosage: 6 CYCLES AT INTERVALS OF 21 DAYS
     Route: 048
     Dates: start: 20201120
  3. DOCETAXEL. [Concomitant]
     Active Substance: DOCETAXEL
     Indication: PRODUCT USED FOR UNKNOWN INDICATION
     Dosage: DOCETAXEL 75 MG/M2 I.V. ON DAY 1?                            VARGATEF 200 MG BID P.O. FROM DAY 2 TO
     Route: 042
     Dates: start: 20200512, end: 20201006

REACTIONS (9)
  - Polyneuropathy [Unknown]
  - Chest pain [Unknown]
  - Abdominal pain [Unknown]
  - Arthralgia [Unknown]
  - Malignant neoplasm progression [Unknown]
  - Diarrhoea [Unknown]
  - Asthenia [Unknown]
  - Neutropenia [Unknown]
  - Dysgeusia [Unknown]

NARRATIVE: CASE EVENT DATE: 20210526
